FAERS Safety Report 4377009-X (Version None)
Quarter: 2004Q2

REPORT INFORMATION
  Report Type: 
  Country: None (occurrence: None)
  Receive Date: 20040614
  Receipt Date: 20040603
  Transmission Date: 20050107
  Serious: Yes (Other)
  Sender: FDA-Public Use
  Company Number: JP-JNJFOC-20040601399

PATIENT
  Age: 39 Year
  Sex: Male

DRUGS (4)
  1. ITRIZOLE [Suspect]
     Indication: BRONCHOPULMONARY ASPERGILLOSIS
     Route: 049
  2. LEVOFLOXACIN [Suspect]
     Indication: BRONCHOPULMONARY ASPERGILLOSIS
     Route: 049
  3. MICAFUNGIN SODIUM [Suspect]
     Indication: BRONCHOPULMONARY ASPERGILLOSIS
  4. MEROPENEM TRIHYDRATE [Suspect]
     Indication: BRONCHOPULMONARY ASPERGILLOSIS

REACTIONS (2)
  - PULSE ABNORMAL [None]
  - VENTRICULAR EXTRASYSTOLES [None]
